FAERS Safety Report 22132325 (Version 1)
Quarter: 2023Q1

REPORT INFORMATION
  Report Type: Spontaneous
  Country: US (occurrence: US)
  Receive Date: 20230323
  Receipt Date: 20230323
  Transmission Date: 20230417
  Serious: Yes (Hospitalization)
  Sender: FDA-Public Use
  Company Number: US-ABBVIE-4698911

PATIENT
  Sex: Female
  Weight: 51 kg

DRUGS (3)
  1. HUMIRA [Suspect]
     Active Substance: ADALIMUMAB
     Indication: Product used for unknown indication
     Route: 058
  2. XELJANZ [Suspect]
     Active Substance: TOFACITINIB CITRATE
     Indication: Colitis ulcerative
     Dosage: 1 TABLET OF 10 MG BY MOUTH TWICE A DAY, STOP DATE 2023-01
     Route: 048
     Dates: start: 2021
  3. XELJANZ [Suspect]
     Active Substance: TOFACITINIB CITRATE
     Indication: Colitis ulcerative
     Dosage: 1 TABLET A DAY
     Route: 048
     Dates: start: 202301

REACTIONS (6)
  - Haemorrhage [Unknown]
  - Blood pressure abnormal [Unknown]
  - Intentional product misuse [Not Recovered/Not Resolved]
  - Dementia Alzheimer^s type [Unknown]
  - Colitis ulcerative [Unknown]
  - Depression [Unknown]

NARRATIVE: CASE EVENT DATE: 20160101
